FAERS Safety Report 4873664-6 (Version None)
Quarter: 2006Q1

REPORT INFORMATION
  Report Type: 
  Country: None (occurrence: None)
  Receive Date: 20060103
  Receipt Date: 20060103
  Transmission Date: 20060701
  Serious: Yes (Other)
  Sender: FDA-Public Use
  Company Number: None

PATIENT
  Age: 35 Year
  Sex: Male
  Weight: 95.2554 kg

DRUGS (2)
  1. EFFEXOR [Suspect]
     Indication: ANXIETY
     Dosage: 150 MG  2/DAY  PO
     Route: 048
     Dates: start: 20000801, end: 20051231
  2. EFFEXOR [Suspect]
     Indication: DEPRESSION
     Dosage: 150 MG  2/DAY  PO
     Route: 048
     Dates: start: 20000801, end: 20051231

REACTIONS (11)
  - AGGRESSION [None]
  - DRUG DEPENDENCE [None]
  - DRUG WITHDRAWAL SYNDROME [None]
  - FEELING ABNORMAL [None]
  - HOT FLUSH [None]
  - INSOMNIA [None]
  - MUSCLE TWITCHING [None]
  - NERVOUS SYSTEM DISORDER [None]
  - NIGHT SWEATS [None]
  - NIGHTMARE [None]
  - THINKING ABNORMAL [None]
